FAERS Safety Report 10428236 (Version 2)
Quarter: 2014Q4

REPORT INFORMATION
  Report Type: Spontaneous
  Country: US (occurrence: US)
  Receive Date: 20140903
  Receipt Date: 20141003
  Transmission Date: 20150528
  Serious: No
  Sender: FDA-Public Use
  Company Number: US-PFIZER INC-2014245245

PATIENT
  Age: 80 Year
  Sex: Female
  Weight: 100 kg

DRUGS (2)
  1. XELJANZ [Suspect]
     Active Substance: TOFACITINIB CITRATE
     Indication: RHEUMATOID ARTHRITIS
     Dosage: 05 MG, 2X/DAY
     Route: 048
     Dates: start: 201402
  2. LOVASTATIN. [Concomitant]
     Active Substance: LOVASTATIN
     Indication: BLOOD CHOLESTEROL ABNORMAL
     Dosage: 10 MG, DAILY

REACTIONS (4)
  - Back pain [Unknown]
  - Neck pain [Unknown]
  - Acne [Unknown]
  - Hypotension [Unknown]

NARRATIVE: CASE EVENT DATE: 2014
